FAERS Safety Report 9667970 (Version 1)
Quarter: 2013Q4

REPORT INFORMATION
  Report Type: Spontaneous
  Country: US (occurrence: US)
  Receive Date: 20131104
  Receipt Date: 20131104
  Transmission Date: 20140711
  Serious: Yes (Hospitalization)
  Sender: FDA-Public Use
  Company Number: US-GLAXOSMITHKLINE-A1047547A

PATIENT
  Age: 63 Year
  Sex: Female

DRUGS (5)
  1. ADVAIR [Suspect]
     Indication: ASTHMA
     Dosage: 2PUFF TWICE PER DAY
     Route: 055
  2. CRESTOR [Concomitant]
  3. DIOVAN HCT [Concomitant]
  4. FLONASE [Concomitant]
  5. LANOXIN [Concomitant]

REACTIONS (4)
  - Cerebrovascular accident [Recovered/Resolved]
  - Pulmonary mass [Recovered/Resolved]
  - Pulmonary mass [Recovered/Resolved]
  - Overdose [Not Recovered/Not Resolved]
